FAERS Safety Report 23500749 (Version 6)
Quarter: 2025Q3

REPORT INFORMATION
  Report Type: Spontaneous
  Country: US (occurrence: US)
  Receive Date: 20240208
  Receipt Date: 20250804
  Transmission Date: 20251021
  Serious: Yes (Death, Life-Threatening, Hospitalization, Other)
  Sender: PFIZER
  Company Number: US-PFIZER INC-202400034614

PATIENT
  Age: 81 Year
  Sex: Male
  Weight: 74.84 kg

DRUGS (2)
  1. VYNDAMAX [Suspect]
     Active Substance: TAFAMIDIS
     Indication: Cardiac amyloidosis
     Dosage: 61 MG, 1X/DAY
     Route: 048
     Dates: end: 202403
  2. VYNDAMAX [Suspect]
     Active Substance: TAFAMIDIS
     Indication: Cardiac failure congestive

REACTIONS (23)
  - Cerebrovascular accident [Fatal]
  - Cerebrovascular disorder [Fatal]
  - Cardiac failure congestive [Fatal]
  - Cardiac amyloidosis [Fatal]
  - Atrial fibrillation [Recovered/Resolved]
  - Internal haemorrhage [Unknown]
  - Fall [Unknown]
  - Head injury [Unknown]
  - COVID-19 [Unknown]
  - Asthenia [Unknown]
  - Dizziness [Unknown]
  - Balance disorder [Unknown]
  - Delirium [Unknown]
  - Chronic kidney disease [Unknown]
  - Aggression [Unknown]
  - Vascular dementia [Unknown]
  - Loss of consciousness [Unknown]
  - Malaise [Unknown]
  - Dyspnoea [Recovering/Resolving]
  - Oxygen saturation decreased [Unknown]
  - Cyanosis [Unknown]
  - Raynaud^s phenomenon [Unknown]
  - Weight decreased [Unknown]

NARRATIVE: CASE EVENT DATE: 20231209
